FAERS Safety Report 21535077 (Version 2)
Quarter: 2023Q1

REPORT INFORMATION
  Report Type: Spontaneous
  Country: CO (occurrence: CO)
  Receive Date: 20221101
  Receipt Date: 20230316
  Transmission Date: 20230418
  Serious: Yes (Other)
  Sender: FDA-Public Use
  Company Number: CO-SA-SAC20220929001486

PATIENT
  Sex: Male

DRUGS (2)
  1. PRALUENT [Suspect]
     Active Substance: ALIROCUMAB
     Indication: Type IIa hyperlipidaemia
     Dosage: 75 MG, Q15D
     Route: 058
     Dates: start: 20220628
  2. PRALUENT [Suspect]
     Active Substance: ALIROCUMAB
     Indication: Cholesterosis

REACTIONS (10)
  - Headache [Recovered/Resolved]
  - Pyrexia [Recovered/Resolved]
  - Pneumonia viral [Not Recovered/Not Resolved]
  - Influenza [Recovered/Resolved]
  - Chills [Recovered/Resolved]
  - Pharyngitis [Recovered/Resolved]
  - Viral infection [Unknown]
  - Influenza like illness [Unknown]
  - Nasal congestion [Unknown]
  - Arthralgia [Unknown]

NARRATIVE: CASE EVENT DATE: 20221017
